FAERS Safety Report 7261712-8 (Version None)
Quarter: 2011Q1

REPORT INFORMATION
  Report Type: 
  Country: None (occurrence: None)
  Receive Date: 20110130
  Receipt Date: 20101021
  Transmission Date: 20110831
  Serious: No
  Sender: FDA-Public Use
  Company Number: US-ABBOTT-10P-163-0680955-00

PATIENT
  Age: 46 Year
  Sex: Female

DRUGS (3)
  1. HUMIRA [Suspect]
     Indication: CROHN'S DISEASE
     Route: 058
     Dates: start: 20100601
  2. CITALOPRAM [Concomitant]
     Indication: TENSION
     Route: 048
  3. ACECAL [Concomitant]
     Indication: PRODUCT USED FOR UNKNOWN INDICATION
     Dosage: 9 TABS DAILY
     Route: 048

REACTIONS (3)
  - PRURITUS [None]
  - RASH PAPULAR [None]
  - ERYTHEMA [None]
